FAERS Safety Report 16309437 (Version 1)
Quarter: 2019Q2

REPORT INFORMATION
  Report Type: Spontaneous
  Country: GB (occurrence: GB)
  Receive Date: 20190514
  Receipt Date: 20190514
  Transmission Date: 20190711
  Serious: Yes (Other)
  Sender: FDA-Public Use
  Company Number: GB-BAUSCH-2012P1060341

PATIENT
  Age: 37 Year
  Sex: Male

DRUGS (1)
  1. IMIQUIMOD. [Suspect]
     Active Substance: IMIQUIMOD
     Indication: SKIN PAPILLOMA
     Dosage: MID-MAY 2006
     Route: 061
     Dates: start: 200605

REACTIONS (1)
  - Lichen sclerosus [Recovered/Resolved]

NARRATIVE: CASE EVENT DATE: 200606
